FAERS Safety Report 17471494 (Version 1)
Quarter: 2020Q1

REPORT INFORMATION
  Report Type: Spontaneous
  Country: DK (occurrence: DK)
  Receive Date: 20200228
  Receipt Date: 20200228
  Transmission Date: 20200409
  Serious: Yes (Other)
  Sender: FDA-Public Use
  Company Number: DK-TEVA-2020-DK-1192043

PATIENT
  Sex: Female

DRUGS (1)
  1. PANTOPRAZOLE TEVA 20 MG [Suspect]
     Active Substance: PANTOPRAZOLE SODIUM
     Indication: OESOPHAGITIS
     Dosage: 20 MILLIGRAM DAILY;
     Route: 065
     Dates: start: 2019

REACTIONS (5)
  - Oesophageal polyp [Unknown]
  - Histology abnormal [Unknown]
  - Therapeutic product effect incomplete [Unknown]
  - Oesophageal ulcer [Unknown]
  - Gastrooesophageal sphincter insufficiency [Unknown]

NARRATIVE: CASE EVENT DATE: 2019
